FAERS Safety Report 10025423 (Version 2)
Quarter: 2016Q2

REPORT INFORMATION
  Report Type: Spontaneous
  Country: GB (occurrence: GB)
  Receive Date: 20140320
  Receipt Date: 20160530
  Transmission Date: 20160815
  Serious: Yes (Other)
  Sender: FDA-Public Use
  Company Number: GB-JNJFOC-20140307995

PATIENT

DRUGS (4)
  1. FUMARIC ACID [Concomitant]
     Active Substance: FUMARIC ACID
     Route: 065
  2. INFLIXIMAB, RECOMBINANT [Suspect]
     Active Substance: INFLIXIMAB
     Indication: PSORIASIS
     Route: 042
  3. METHOTREXATE [Concomitant]
     Active Substance: METHOTREXATE
     Route: 065
  4. CICLOSPORIN [Concomitant]
     Active Substance: CYCLOSPORINE
     Route: 065

REACTIONS (18)
  - Arthralgia [Unknown]
  - Furuncle [Unknown]
  - Haematuria [Unknown]
  - Psoriasis [Unknown]
  - Lethargy [Unknown]
  - Autoimmune disorder [Unknown]
  - Cellulitis [Unknown]
  - Infected dermal cyst [Unknown]
  - Hypersensitivity [Unknown]
  - Upper respiratory tract infection [Unknown]
  - Lower respiratory tract infection [Unknown]
  - Liver function test increased [Not Recovered/Not Resolved]
  - Eye disorder [Unknown]
  - Urinary tract infection [Unknown]
  - Balance disorder [Unknown]
  - Otitis externa [Unknown]
  - Skin cancer [Unknown]
  - Headache [Unknown]
